FAERS Safety Report 24258552 (Version 1)
Quarter: 2024Q3

REPORT INFORMATION
  Report Type: Spontaneous
  Country: US (occurrence: US)
  Receive Date: 20240828
  Receipt Date: 20240828
  Transmission Date: 20241017
  Serious: No
  Sender: VELOXIS PHARMACEUTICALS
  Company Number: US-VELOXIS PHARMACEUTICALS, INC.-2024-VEL-00182

PATIENT
  Age: 56 Year
  Sex: Female

DRUGS (1)
  1. ENVARSUS XR [Suspect]
     Active Substance: TACROLIMUS
     Indication: Transplant
     Dosage: 1 MG, EVERY OTHER DAY, 2 MG ( 1MG X 2) EVERY OTHER DAY, ALTERNATING
     Route: 065
     Dates: start: 20210331

REACTIONS (1)
  - Visual impairment [Unknown]
